FAERS Safety Report 9587137 (Version 3)
Quarter: 2013Q4

REPORT INFORMATION
  Report Type: Spontaneous
  Country: BR (occurrence: BR)
  Receive Date: 20131003
  Receipt Date: 20131108
  Transmission Date: 20140711
  Serious: Yes (Other)
  Sender: FDA-Public Use
  Company Number: BR-JNJFOC-20131001588

PATIENT
  Age: 38 Year
  Sex: Male

DRUGS (4)
  1. XARELTO [Suspect]
     Indication: THROMBOSIS PROPHYLAXIS
     Route: 048
  2. XARELTO [Suspect]
     Indication: THROMBOSIS PROPHYLAXIS
     Route: 048
  3. XARELTO [Suspect]
     Indication: LIGAMENT OPERATION
     Route: 048
  4. XARELTO [Suspect]
     Indication: LIGAMENT OPERATION
     Route: 048

REACTIONS (2)
  - Deep vein thrombosis postoperative [Unknown]
  - Drug ineffective [Unknown]
